FAERS Safety Report 16589178 (Version 1)
Quarter: 2019Q3

REPORT INFORMATION
  Report Type: Spontaneous
  Country: DK (occurrence: DK)
  Receive Date: 20190718
  Receipt Date: 20190718
  Transmission Date: 20191004
  Serious: Yes (Other)
  Sender: FDA-Public Use
  Company Number: DK-USP-000001

PATIENT
  Age: 83 Year

DRUGS (1)
  1. NITROGLYCERIN. [Suspect]
     Active Substance: NITROGLYCERIN
     Indication: CARDIAC TAMPONADE
     Route: 060

REACTIONS (2)
  - Product use in unapproved indication [Unknown]
  - Cardiac arrest [Unknown]
